FAERS Safety Report 10400934 (Version 2)
Quarter: 2014Q4

REPORT INFORMATION
  Report Type: Spontaneous
  Country: AU (occurrence: AU)
  Receive Date: 20140821
  Receipt Date: 20141030
  Transmission Date: 20150528
  Serious: Yes (Other)
  Sender: FDA-Public Use
  Company Number: AU-009507513-1408AUS011370

PATIENT

DRUGS (1)
  1. EZETROL [Suspect]
     Active Substance: EZETIMIBE
     Dosage: DOSE UNSPECIFIED
     Route: 048

REACTIONS (1)
  - Rhabdomyolysis [Recovered/Resolved]
